FAERS Safety Report 25612944 (Version 3)
Quarter: 2025Q4

REPORT INFORMATION
  Report Type: Spontaneous
  Country: EU (occurrence: EU)
  Receive Date: 20250728
  Receipt Date: 20251016
  Transmission Date: 20260118
  Serious: Yes (Hospitalization, Other)
  Sender: PFIZER
  Company Number: EU-PFIZER INC-PV202500089982

PATIENT
  Age: 33 Year
  Sex: Male

DRUGS (14)
  1. SOMATROPIN [Suspect]
     Active Substance: SOMATROPIN
     Indication: Exercise tolerance increased
     Dosage: PERIODICALLY, 4-5 TIMES A WEEK BEFORE EACH TRAINING SESSION
  2. CABERGOLINE [Suspect]
     Active Substance: CABERGOLINE
     Indication: Exercise tolerance increased
     Dosage: UNK
  3. TRAZODONE HYDROCHLORIDE [Suspect]
     Active Substance: TRAZODONE HYDROCHLORIDE
     Indication: Mixed anxiety and depressive disorder
     Dosage: UNK
  4. TRAZODONE HYDROCHLORIDE [Suspect]
     Active Substance: TRAZODONE HYDROCHLORIDE
     Indication: Exercise tolerance increased
  5. CITALOPRAM [Suspect]
     Active Substance: CITALOPRAM
     Indication: Mixed anxiety and depressive disorder
     Dosage: UNK
  6. CITALOPRAM [Suspect]
     Active Substance: CITALOPRAM
     Indication: Exercise tolerance increased
  7. HYDROXYZINE [Suspect]
     Active Substance: HYDROXYZINE HYDROCHLORIDE
     Indication: Mixed anxiety and depressive disorder
     Dosage: UNK
  8. HYDROXYZINE [Suspect]
     Active Substance: HYDROXYZINE HYDROCHLORIDE
     Indication: Exercise tolerance increased
  9. ALPRAZOLAM [Suspect]
     Active Substance: ALPRAZOLAM
     Indication: Exercise tolerance increased
     Dosage: 0.5 MG, DAILY (/24 H)
  10. ALPRAZOLAM [Suspect]
     Active Substance: ALPRAZOLAM
     Dosage: 1 MG, DAILY (/24 H)
  11. DIAZEPAM [Suspect]
     Active Substance: DIAZEPAM
     Indication: Exercise tolerance increased
     Dosage: UNK
  12. TESTOSTERONE [Suspect]
     Active Substance: TESTOSTERONE
     Indication: Exercise tolerance increased
     Dosage: THE WEEKLY DOSE OF TESTOSTERONE PERIODICALLY EXCEEDED 1 G
  13. NANDROLONE [Suspect]
     Active Substance: NANDROLONE
     Indication: Exercise tolerance increased
     Dosage: UNK
  14. ANASTROZOLE [Suspect]
     Active Substance: ANASTROZOLE
     Indication: Exercise tolerance increased
     Dosage: UNK

REACTIONS (13)
  - Chest pain [Unknown]
  - Hypertension [Unknown]
  - Hypoglycaemia [Unknown]
  - Andropause [Unknown]
  - Arteriosclerosis coronary artery [Recovering/Resolving]
  - Drug abuse [Unknown]
  - Peptic ulcer [Unknown]
  - High density lipoprotein decreased [Recovering/Resolving]
  - Blood testosterone increased [Unknown]
  - Blood growth hormone increased [Unknown]
  - Insulin-like growth factor increased [Unknown]
  - Irritable bowel syndrome [Unknown]
  - Off label use [Unknown]
